FAERS Safety Report 9365564 (Version 1)
Quarter: 2013Q2

REPORT INFORMATION
  Report Type: Spontaneous
  Country: US (occurrence: US)
  Receive Date: 20130625
  Receipt Date: 20130625
  Transmission Date: 20140414
  Serious: No
  Sender: FDA-Public Use
  Company Number: US-BIOGENIDEC-2013BI055743

PATIENT
  Sex: Female

DRUGS (17)
  1. TYSABRI [Suspect]
     Indication: MULTIPLE SCLEROSIS
     Route: 042
     Dates: start: 20110715, end: 20130401
  2. AVONEX [Concomitant]
     Indication: MULTIPLE SCLEROSIS
     Route: 030
     Dates: start: 20080301
  3. BENADRYL [Concomitant]
     Route: 048
  4. CALCIUM CARBONATE WITH VITAMIN D3 AND MIINERALS [Concomitant]
     Route: 048
  5. CLOTRIMAZOLE CREAM [Concomitant]
     Route: 061
  6. CLONAZEPAM [Concomitant]
     Route: 048
  7. COLACE [Concomitant]
     Route: 048
  8. LORATADINE [Concomitant]
     Route: 048
  9. LYSINE-L [Concomitant]
  10. MAXALT [Concomitant]
     Route: 048
  11. PINK BISMUTH [Concomitant]
     Route: 048
  12. PRENATAL [Concomitant]
     Route: 048
  13. RANITIDINE HCL [Concomitant]
     Route: 048
  14. TUMS [Concomitant]
     Route: 048
  15. VESICARE [Concomitant]
     Route: 048
  16. ZOCOR [Concomitant]
     Route: 048
  17. ZOLOFT [Concomitant]
     Route: 048

REACTIONS (8)
  - Loss of consciousness [Not Recovered/Not Resolved]
  - Abasia [Unknown]
  - Vitamin D decreased [Unknown]
  - Balance disorder [Unknown]
  - Ataxia [Unknown]
  - Central nervous system lesion [Unknown]
  - Orthostatic intolerance [Unknown]
  - Hyperhidrosis [Unknown]
